FAERS Safety Report 8683389 (Version 2)
Quarter: 2012Q4

REPORT INFORMATION
  Report Type: 
  Country: US (occurrence: US)
  Receive Date: 20120726
  Receipt Date: 20120928
  Transmission Date: 20130627
  Serious: Yes (Other)
  Sender: FDA-Public Use
  Company Number: US-JNJFOC-20120712438

PATIENT
  Age: 82 None
  Sex: Female
  Weight: 85.73 kg

DRUGS (2)
  1. XARELTO [Suspect]
     Indication: ANTICOAGULANT THERAPY
     Route: 048
     Dates: start: 20120702, end: 201207
  2. XARELTO [Suspect]
     Indication: ANTICOAGULANT THERAPY
     Route: 048
     Dates: start: 201207

REACTIONS (3)
  - Contusion [Not Recovered/Not Resolved]
  - Cardioversion [Unknown]
  - Intercepted medication error [Unknown]
